FAERS Safety Report 4701143-5 (Version None)
Quarter: 2005Q2

REPORT INFORMATION
  Report Type: 
  Country: None (occurrence: None)
  Receive Date: 20050628
  Receipt Date: 20050405
  Transmission Date: 20051028
  Serious: Yes (Hospitalization, Disabling)
  Sender: FDA-Public Use
  Company Number: GB-GLAXOSMITHKLINE-B0376853A

PATIENT
  Age: 26 Year
  Sex: Female

DRUGS (3)
  1. RETROVIR [Suspect]
     Route: 065
     Dates: end: 20040801
  2. COMBIVIR [Concomitant]
     Route: 048
     Dates: start: 20040329, end: 20040816
  3. KALETRA [Concomitant]
     Dosage: 3U THREE TIMES PER DAY
     Route: 048
     Dates: start: 20040329, end: 20040816

REACTIONS (9)
  - CHEST PAIN [None]
  - CONGESTIVE CARDIOMYOPATHY [None]
  - DRUG EXPOSURE DURING PREGNANCY [None]
  - DYSPNOEA [None]
  - EXERCISE TOLERANCE DECREASED [None]
  - FATIGUE [None]
  - ORTHOPNOEA [None]
  - PREGNANCY [None]
  - SYNCOPE [None]
